FAERS Safety Report 25426372 (Version 1)
Quarter: 2025Q2

REPORT INFORMATION
  Report Type: Report from Study
  Country: US (occurrence: US)
  Receive Date: 20250612
  Receipt Date: 20250612
  Transmission Date: 20250717
  Serious: Yes (Hospitalization, Other)
  Sender: ABBVIE
  Company Number: US-ABBVIE-6030839

PATIENT
  Age: 76 Year
  Sex: Male

DRUGS (2)
  1. IMBRUVICA [Suspect]
     Active Substance: IBRUTINIB
     Indication: Chronic lymphocytic leukaemia
     Dosage: DISCONTINUED FOR ABOUT 3 WEEKS
     Route: 048
     Dates: start: 20180528
  2. IMBRUVICA [Suspect]
     Active Substance: IBRUTINIB
     Indication: Chronic lymphocytic leukaemia
     Route: 048

REACTIONS (7)
  - Intervertebral disc disorder [Unknown]
  - Spinal disorder [Unknown]
  - Fall [Unknown]
  - Nervous system disorder [Unknown]
  - Contusion [Unknown]
  - Rib fracture [Unknown]
  - Head injury [Unknown]

NARRATIVE: CASE EVENT DATE: 20250413
